FAERS Safety Report 9113267 (Version 1)
Quarter: 2013Q1

REPORT INFORMATION
  Report Type: Spontaneous
  Country: US (occurrence: US)
  Receive Date: 20130201
  Receipt Date: 20130201
  Transmission Date: 20140127
  Serious: Yes (Other)
  Sender: FDA-Public Use
  Company Number: US-009507513-1209USA005821

PATIENT
  Age: 1 Day
  Sex: 0

DRUGS (4)
  1. ISENTRESS [Suspect]
     Dosage: 400 MG, UNK
     Route: 064
  2. FUZEON [Suspect]
     Route: 064
  3. RETROVIR [Suspect]
     Route: 064
  4. COMBIVIR [Suspect]
     Route: 064

REACTIONS (2)
  - Premature baby [Unknown]
  - Foetal exposure during pregnancy [Unknown]
